FAERS Safety Report 6461424-4 (Version None)
Quarter: 2009Q4

REPORT INFORMATION
  Report Type: 
  Country: None (occurrence: None)
  Receive Date: 20091130
  Receipt Date: 20091120
  Transmission Date: 20100525
  Serious: Yes (Hospitalization)
  Sender: FDA-Public Use
  Company Number: PL-BRISTOL-MYERS SQUIBB COMPANY-12522587

PATIENT
  Age: 78 Year
  Sex: Male
  Weight: 95 kg

DRUGS (5)
  1. IRBESARTAN [Suspect]
     Indication: HYPERTENSION
     Dosage: FOLLOW-UP INFORMATION INDICATED THAT THE STUDY MEDICATION WAS TEMPORARILY STOPPED
     Route: 048
     Dates: start: 20040225
  2. ACENOCOUMAROL [Suspect]
     Indication: PROPHYLAXIS
     Dates: start: 20040225
  3. ASPIRIN [Concomitant]
  4. CARVEDILOL [Concomitant]
  5. NADROPARIN CALCIUM [Concomitant]

REACTIONS (3)
  - HYPOTENSION [None]
  - LOSS OF CONSCIOUSNESS [None]
  - SICK SINUS SYNDROME [None]
